FAERS Safety Report 15481652 (Version 1)
Quarter: 2018Q4

REPORT INFORMATION
  Report Type: Spontaneous
  Country: US (occurrence: US)
  Receive Date: 20181010
  Receipt Date: 20181010
  Transmission Date: 20190205
  Serious: No
  Sender: FDA-Public Use
  Company Number: US-BAYER-2018-188993

PATIENT
  Age: 70 Year
  Sex: Female
  Weight: 57.96 kg

DRUGS (1)
  1. MIRALAX [Suspect]
     Active Substance: POLYETHYLENE GLYCOL 3350
     Indication: GASTROINTESTINAL DISORDER
     Dosage: 2 DF, BID
     Route: 048
     Dates: start: 20181008

REACTIONS (4)
  - Product use issue [Unknown]
  - Off label use [None]
  - Product prescribing issue [Unknown]
  - Product use in unapproved indication [None]

NARRATIVE: CASE EVENT DATE: 20181008
